FAERS Safety Report 6331356-0 (Version None)
Quarter: 2009Q3

REPORT INFORMATION
  Report Type: 
  Country: None (occurrence: None)
  Receive Date: 20090827
  Receipt Date: 20090814
  Transmission Date: 20100115
  Serious: No
  Sender: FDA-Public Use
  Company Number: DE-ELI_LILLY_AND_COMPANY-DE200908003354

PATIENT
  Age: 70 Year
  Sex: Female

DRUGS (3)
  1. CYMBALTA [Suspect]
     Indication: DEPRESSION
     Dosage: 60 MG, DAILY (1/D)
     Route: 048
     Dates: start: 20090803, end: 20090810
  2. BETA BLOCKING AGENTS [Concomitant]
     Dosage: UNK, UNKNOWN
     Route: 065
  3. DIGITOXIN [Concomitant]
     Dosage: UNK, UNKNOWN
     Route: 065

REACTIONS (1)
  - GAMMA-GLUTAMYLTRANSFERASE INCREASED [None]
